FAERS Safety Report 8059708-1 (Version None)
Quarter: 2012Q1

REPORT INFORMATION
  Report Type: 
  Country: None (occurrence: None)
  Receive Date: 20120120
  Receipt Date: 20120116
  Transmission Date: 20120608
  Serious: Yes (Hospitalization)
  Sender: FDA-Public Use
  Company Number: PHHY2012FR003895

PATIENT
  Sex: Female

DRUGS (5)
  1. LERCANIDIPINE [Suspect]
     Route: 048
     Dates: end: 20111020
  2. BISOPROLOL [Suspect]
     Route: 048
     Dates: end: 20111020
  3. AMIODARONE HCL [Concomitant]
  4. COUMADIN [Concomitant]
  5. VALSARTAN  AND HYDROCHLOROTHIAZIDE [Suspect]
     Dosage: 1 DF, (160 MG VAL/12.5 MG HCT)
     Route: 048
     Dates: end: 20111020

REACTIONS (3)
  - FALL [None]
  - SINUS BRADYCARDIA [None]
  - ORTHOSTATIC HYPOTENSION [None]
